FAERS Safety Report 4342821-X (Version None)
Quarter: 2004Q2

REPORT INFORMATION
  Report Type: 
  Country: None (occurrence: None)
  Receive Date: 20040416
  Receipt Date: 20040406
  Transmission Date: 20050107
  Serious: Yes (Death)
  Sender: FDA-Public Use
  Company Number: 2004205119US

PATIENT
  Age: 58 Year
  Sex: Male
  Weight: 119.7 kg

DRUGS (6)
  1. INSPRA [Suspect]
     Indication: ISCHAEMIC CARDIOMYOPATHY
     Dosage: 25 MG, QD
  2. TOPROL-XL [Concomitant]
  3. ASPIRIN [Concomitant]
  4. ALTACE [Concomitant]
  5. COMBIVENT [Concomitant]
  6. PLAVIX [Concomitant]

REACTIONS (17)
  - ATRIOVENTRICULAR BLOCK FIRST DEGREE [None]
  - BLOOD CREATINE PHOSPHOKINASE INCREASED [None]
  - BLOOD PRESSURE DIASTOLIC DECREASED [None]
  - BLOOD PRESSURE INCREASED [None]
  - CARDIOMYOPATHY [None]
  - CORONARY ARTERY DISEASE [None]
  - CORONARY ARTERY OCCLUSION [None]
  - CORONARY ARTERY STENOSIS [None]
  - CORONARY OSTIAL STENOSIS [None]
  - COUGH [None]
  - DIZZINESS [None]
  - DYSPNOEA EXERTIONAL [None]
  - ELECTROCARDIOGRAM QRS COMPLEX PROLONGED [None]
  - ELECTROCARDIOGRAM ST-T CHANGE [None]
  - HEART RATE INCREASED [None]
  - SUDDEN DEATH [None]
  - VENTRICULAR EXTRASYSTOLES [None]
